FAERS Safety Report 22249819 (Version 1)
Quarter: 2023Q2

REPORT INFORMATION
  Report Type: Spontaneous
  Country: US (occurrence: US)
  Receive Date: 20230425
  Receipt Date: 20230425
  Transmission Date: 20230722
  Serious: Yes (Other)
  Sender: FDA-Public Use
  Company Number: US-INCYTE CORPORATION-2023IN004169

PATIENT

DRUGS (1)
  1. JAKAFI [Suspect]
     Active Substance: RUXOLITINIB
     Indication: Anaplastic large cell lymphoma T- and null-cell types
     Dosage: 10 MILLIGRAM, BID
     Route: 048
     Dates: start: 202202

REACTIONS (2)
  - Complication associated with device [Unknown]
  - Off label use [Unknown]

NARRATIVE: CASE EVENT DATE: 20220201
